FAERS Safety Report 11521152 (Version 2)
Quarter: 2016Q4

REPORT INFORMATION
  Report Type: Spontaneous
  Country: JP (occurrence: JP)
  Receive Date: 20150918
  Receipt Date: 20161020
  Transmission Date: 20170206
  Serious: Yes (Hospitalization)
  Sender: FDA-Public Use
  Company Number: JP-SUN PHARMACEUTICAL INDUSTRIES LTD-2015RR-103255

PATIENT

DRUGS (3)
  1. CARVEDILOL. [Suspect]
     Active Substance: CARVEDILOL
     Indication: CARDIOMYOPATHY
     Dosage: 20 MG, UNK
     Route: 065
  2. CARVEDILOL. [Suspect]
     Active Substance: CARVEDILOL
     Indication: CARDIOMYOPATHY
     Dosage: SMALL DOSE
     Route: 065
  3. CARVEDILOL. [Suspect]
     Active Substance: CARVEDILOL
     Dosage: 10 MG, UNK

REACTIONS (4)
  - Atrioventricular block second degree [Recovered/Resolved]
  - Bradycardia [Recovered/Resolved]
  - Atrioventricular block complete [Recovered/Resolved]
  - Cardiac failure [Recovered/Resolved]

NARRATIVE: CASE EVENT DATE: 201208
